FAERS Safety Report 8870392 (Version 1)
Quarter: 2012Q4

REPORT INFORMATION
  Report Type: Spontaneous
  Country: US (occurrence: None)
  Receive Date: 20121026
  Receipt Date: 20121026
  Transmission Date: 20130627
  Serious: No
  Sender: FDA-Public Use
  Company Number: None

PATIENT
  Sex: Male
  Weight: 111.58 kg

DRUGS (10)
  1. CLOZAPINE [Suspect]
     Indication: PSYCHOSIS
     Dosage: qhs
     Dates: start: 20120722, end: 20120726
  2. OLANZAPINE [Suspect]
     Indication: PSYCHOSIS
     Dosage: qam
     Dates: start: 20120110, end: 20120726
  3. OLANZAPINE [Suspect]
     Indication: PSYCHOSIS
  4. ACETAMINOPHEN [Concomitant]
  5. ASA [Concomitant]
  6. DIVALPROEX SODIUM [Concomitant]
  7. DOCUSATE [Concomitant]
  8. ERGOLCALER [Concomitant]
  9. HYDROXYZENE [Concomitant]
  10. LORAZEPAM [Concomitant]

REACTIONS (1)
  - Cardio-respiratory arrest [None]
